FAERS Safety Report 6043252-7 (Version None)
Quarter: 2009Q1

REPORT INFORMATION
  Report Type: 
  Country: None (occurrence: None)
  Receive Date: 20090119
  Receipt Date: 20090106
  Transmission Date: 20090719
  Serious: Yes (Hospitalization)
  Sender: FDA-Public Use
  Company Number: FR-ROCHE-606384

PATIENT
  Sex: Male

DRUGS (1)
  1. XELODA [Suspect]
     Indication: DRUG USE FOR UNKNOWN INDICATION
     Dosage: IT WAS REPORTED THAT CORRECT DOSAGE IS UNKNOWN AND THE PATIENT HAD GIVEN LOW DOSE.
     Route: 048
     Dates: start: 20080925, end: 20081007

REACTIONS (3)
  - ASTHENIA [None]
  - SOMNOLENCE [None]
  - VOMITING [None]
